FAERS Safety Report 11348185 (Version 1)
Quarter: 2015Q3

REPORT INFORMATION
  Report Type: Report from Study
  Country: US (occurrence: US)
  Receive Date: 20150806
  Receipt Date: 20150806
  Transmission Date: 20151125
  Serious: Yes (Hospitalization, Other)
  Sender: FDA-Public Use
  Company Number: US-ASTRAZENECA-2015SE71681

PATIENT
  Age: 1051 Month
  Sex: Male
  Weight: 51.7 kg

DRUGS (3)
  1. SYMBICORT [Suspect]
     Active Substance: BUDESONIDE\FORMOTEROL FUMARATE DIHYDRATE
     Indication: ASTHMA
     Dosage: 160/4.5, 2 PUFFS, TWICE A DAY
     Route: 055
     Dates: start: 2012
  2. LUPRON [Concomitant]
     Active Substance: LEUPROLIDE ACETATE
     Indication: PROSTATE CANCER
     Route: 065
  3. MEDICATIONS FOR THE TUBERCULOSIS [Concomitant]

REACTIONS (5)
  - Pneumonia [Unknown]
  - Neoplasm malignant [Unknown]
  - Pulmonary fibrosis [Unknown]
  - Body height decreased [Unknown]
  - Asthma [Unknown]

NARRATIVE: CASE EVENT DATE: 201504
